FAERS Safety Report 5382252-7 (Version None)
Quarter: 2007Q3

REPORT INFORMATION
  Report Type: 
  Country: None (occurrence: None)
  Receive Date: 20070709
  Receipt Date: 20070629
  Transmission Date: 20080115
  Serious: Yes (Other)
  Sender: FDA-Public Use
  Company Number: CA-PFIZER INC-2007054800

PATIENT
  Sex: Female

DRUGS (1)
  1. REACTINE [Suspect]
     Dates: start: 20070616, end: 20070617

REACTIONS (5)
  - AGITATION [None]
  - ANXIETY [None]
  - BIPOLAR DISORDER [None]
  - DEPRESSION [None]
  - PARANOIA [None]
